FAERS Safety Report 7563538-4 (Version None)
Quarter: 2011Q2

REPORT INFORMATION
  Report Type: 
  Country: None (occurrence: None)
  Receive Date: 20110622
  Receipt Date: 20110614
  Transmission Date: 20111010
  Serious: Yes (Hospitalization, Other)
  Sender: FDA-Public Use
  Company Number: HR-ABBOTT-11P-216-0717169-00

PATIENT
  Sex: Male
  Weight: 93 kg

DRUGS (10)
  1. SEVOFLURANE [Interacting]
     Indication: GENERAL ANAESTHESIA
  2. ATORVASTATIN [Concomitant]
     Indication: PRODUCT USED FOR UNKNOWN INDICATION
  3. SEVOFLURANE [Suspect]
     Indication: URETERAL MEATOTOMY
     Dosage: SHORT INHALATORY ANESTHESIA
     Dates: start: 20110324, end: 20110324
  4. MARTEFARIN [Concomitant]
     Indication: PRODUCT USED FOR UNKNOWN INDICATION
     Dates: start: 19940101, end: 20110321
  5. VITAMIN K TAB [Concomitant]
     Indication: PRODUCT USED FOR UNKNOWN INDICATION
     Dates: start: 20110321
  6. CLIVARIN 3436 [Concomitant]
     Indication: DRUG THERAPY
     Dates: start: 20110321
  7. VOLTAREN [Concomitant]
     Indication: PAIN PROPHYLAXIS
     Dosage: 1 AMPOULE
  8. SUFENTA PRESERVATIVE FREE [Interacting]
     Indication: GENERAL ANAESTHESIA
     Route: 042
     Dates: start: 20110324, end: 20110324
  9. BISOPROLOL FUMARATE [Concomitant]
     Indication: PRODUCT USED FOR UNKNOWN INDICATION
  10. PROPOFOL [Interacting]
     Indication: GENERAL ANAESTHESIA
     Route: 042
     Dates: start: 20110324, end: 20110324

REACTIONS (4)
  - BLOOD CREATININE INCREASED [None]
  - DRUG INTERACTION [None]
  - RENAL TUBULAR NECROSIS [None]
  - RENAL FAILURE ACUTE [None]
